FAERS Safety Report 7865464-X (Version None)
Quarter: 2011Q4

REPORT INFORMATION
  Report Type: 
  Country: None (occurrence: None)
  Receive Date: 20111028
  Receipt Date: 20110103
  Transmission Date: 20120403
  Serious: No
  Sender: FDA-Public Use
  Company Number: US-GLAXOSMITHKLINE-A0902500A

PATIENT
  Sex: Female

DRUGS (3)
  1. DIOVAN [Concomitant]
  2. ADVAIR DISKUS 100/50 [Suspect]
     Route: 055
  3. THYROID MEDICATION [Concomitant]

REACTIONS (3)
  - DIZZINESS [None]
  - MALAISE [None]
  - SKIN DISCOLOURATION [None]
